FAERS Safety Report 6212951-6 (Version None)
Quarter: 2009Q2

REPORT INFORMATION
  Report Type: 
  Country: None (occurrence: None)
  Receive Date: 20090603
  Receipt Date: 20090601
  Transmission Date: 20091009
  Serious: No
  Sender: FDA-Public Use
  Company Number: US-B.I. PHARMACEUTICALS,INC./RIDGEFIELD-2009-BP-06670BP

PATIENT
  Age: 43 Year
  Sex: Female

DRUGS (9)
  1. MIRAPEX [Suspect]
     Indication: RESTLESS LEGS SYNDROME
     Dosage: 1MG
     Route: 048
     Dates: start: 20080101
  2. GLUCOPHAGE [Concomitant]
  3. PRILOSEC [Concomitant]
  4. LISINOPRIL AND HYDROCHLOROTHIAZIDE [Concomitant]
  5. PROZAC [Concomitant]
  6. KLONOPIN [Concomitant]
  7. ZANTAC [Concomitant]
  8. NOVOLOG [Concomitant]
  9. LEVEMIR [Concomitant]

REACTIONS (2)
  - HYPERPHAGIA [None]
  - WEIGHT INCREASED [None]
